FAERS Safety Report 8621018-9 (Version None)
Quarter: 2012Q3

REPORT INFORMATION
  Report Type: 
  Country: None (occurrence: None)
  Receive Date: 20120824
  Receipt Date: 20120806
  Transmission Date: 20120928
  Serious: No
  Sender: FDA-Public Use
  Company Number: US-009507513-1208USA003148

PATIENT

DRUGS (1)
  1. STROMECTOL [Suspect]
     Indication: FILARIASIS
     Dosage: 3 MG, QID
     Dates: start: 20120803, end: 20120803

REACTIONS (3)
  - HEADACHE [None]
  - INAPPROPRIATE SCHEDULE OF DRUG ADMINISTRATION [None]
  - PRURITUS [None]
